FAERS Safety Report 8525843-4 (Version None)
Quarter: 2012Q3

REPORT INFORMATION
  Report Type: 
  Country: None (occurrence: None)
  Receive Date: 20120720
  Receipt Date: 20120712
  Transmission Date: 20120928
  Serious: Yes (Hospitalization, Other)
  Sender: FDA-Public Use
  Company Number: US-ELI_LILLY_AND_COMPANY-US201207004379

PATIENT
  Age: 75 Year
  Sex: Female

DRUGS (1)
  1. FORTEO [Suspect]
     Indication: OSTEOPOROSIS
     Dosage: 20 UG, QD
     Dates: start: 20111122

REACTIONS (7)
  - CONSTIPATION [None]
  - COUGH [None]
  - NAUSEA [None]
  - PAIN [None]
  - CHEMOTHERAPY [None]
  - NEUROPATHY PERIPHERAL [None]
  - OVARIAN CANCER [None]
